FAERS Safety Report 23257414 (Version 2)
Quarter: 2024Q1

REPORT INFORMATION
  Report Type: Spontaneous
  Country: DE (occurrence: DE)
  Receive Date: 20231204
  Receipt Date: 20240115
  Transmission Date: 20240410
  Serious: Yes (Other)
  Sender: FDA-Public Use
  Company Number: DE-ALCON LABORATORIES-ALC2023DE005441

PATIENT

DRUGS (2)
  1. LATANOPROST\NETARSUDIL MESYLATE [Suspect]
     Active Substance: LATANOPROST\NETARSUDIL MESYLATE
     Indication: Glaucoma
     Dosage: UNK, QD
     Route: 047
  2. LATANOPROST\NETARSUDIL MESYLATE [Suspect]
     Active Substance: LATANOPROST\NETARSUDIL MESYLATE
     Indication: Ocular hypertension

REACTIONS (6)
  - Conjunctival erosion [Recovered/Resolved]
  - Condition aggravated [Recovered/Resolved]
  - Product package associated injury [Recovered/Resolved]
  - Product administration error [Unknown]
  - Product delivery mechanism issue [Unknown]
  - Eye pain [Recovered/Resolved]

NARRATIVE: CASE EVENT DATE: 20231101
